FAERS Safety Report 16389133 (Version 1)
Quarter: 2019Q2

REPORT INFORMATION
  Report Type: Spontaneous
  Country: BR (occurrence: BR)
  Receive Date: 20190604
  Receipt Date: 20190604
  Transmission Date: 20190711
  Serious: Yes (Other)
  Sender: FDA-Public Use
  Company Number: BR-PFIZER INC-2019231423

PATIENT
  Sex: Female

DRUGS (1)
  1. LORAX (LORAZEPAM) [Suspect]
     Active Substance: LORAZEPAM
     Indication: ANXIETY
     Route: 048

REACTIONS (4)
  - Product use issue [Unknown]
  - Thyroid mass [Unknown]
  - Insomnia [Not Recovered/Not Resolved]
  - Intentional product misuse [Unknown]
